FAERS Safety Report 24592411 (Version 2)
Quarter: 2025Q3

REPORT INFORMATION
  Report Type: Spontaneous
  Country: EU (occurrence: EU)
  Receive Date: 20241108
  Receipt Date: 20250809
  Transmission Date: 20251020
  Serious: Yes (Death, Life-Threatening, Other)
  Sender: ALEXION PHARMACEUTICALS
  Company Number: EU-AstraZeneca-CH-00733696A

PATIENT
  Sex: Male

DRUGS (1)
  1. DAPAGLIFLOZIN [Suspect]
     Active Substance: DAPAGLIFLOZIN
     Indication: Cardiac failure
     Dosage: 10 MILLIGRAM, QD

REACTIONS (3)
  - Sudden death [Fatal]
  - Ventricular fibrillation [Unknown]
  - Torsade de pointes [Unknown]

NARRATIVE: CASE EVENT DATE: 20240902
